FAERS Safety Report 9686709 (Version 2)
Quarter: 2013Q4

REPORT INFORMATION
  Report Type: Report from Study
  Country: BR (occurrence: BR)
  Receive Date: 20131113
  Receipt Date: 20131114
  Transmission Date: 20140711
  Serious: Yes (Life-Threatening, Hospitalization, Other)
  Sender: FDA-Public Use
  Company Number: PHHY2013BR128419

PATIENT
  Age: 11 Year
  Sex: Female
  Weight: 25 kg

DRUGS (2)
  1. OMNITROPE [Suspect]
     Dosage: 1.2 MG, QD (ONE TIME AT NIGHT)
     Dates: start: 20130802, end: 20130808
  2. DESMOPRESSIN [Concomitant]
     Indication: DIABETES MELLITUS
     Dosage: UNK ONCE A DAY

REACTIONS (5)
  - Pain [Recovered/Resolved]
  - Malaise [Recovered/Resolved]
  - Intracranial pressure increased [Recovered/Resolved]
  - Headache [Recovered/Resolved]
  - Loss of consciousness [Recovered/Resolved]
